FAERS Safety Report 7738972-X (Version None)
Quarter: 2011Q3

REPORT INFORMATION
  Report Type: 
  Country: None (occurrence: None)
  Receive Date: 20110909
  Receipt Date: 20110831
  Transmission Date: 20111222
  Serious: No
  Sender: FDA-Public Use
  Company Number: US-BIOGENIDEC-2011BI033245

PATIENT
  Sex: Female

DRUGS (2)
  1. TYSABRI [Suspect]
     Indication: MULTIPLE SCLEROSIS
     Route: 042
     Dates: start: 20061103
  2. AVONEX [Concomitant]
     Indication: MULTIPLE SCLEROSIS
     Route: 030
     Dates: start: 19990501

REACTIONS (8)
  - WHITE BLOOD CELL COUNT INCREASED [None]
  - CENTRAL NERVOUS SYSTEM LESION [None]
  - MEMORY IMPAIRMENT [None]
  - BALANCE DISORDER [None]
  - FRUSTRATION [None]
  - CONTUSION [None]
  - PARAESTHESIA [None]
  - VIRAL INFECTION [None]
